FAERS Safety Report 4667641-8 (Version None)
Quarter: 2005Q2

REPORT INFORMATION
  Report Type: 
  Country: None (occurrence: None)
  Receive Date: 20050517
  Receipt Date: 20050124
  Transmission Date: 20051028
  Serious: Yes (Other)
  Sender: FDA-Public Use
  Company Number: PHEH2005US01243

PATIENT
  Age: 2 Year
  Sex: Male

DRUGS (1)
  1. GLEEVEC [Suspect]
     Indication: HYPEREOSINOPHILIC SYNDROME
     Dosage: 200 MG, QD, ORAL
     Route: 048
     Dates: start: 20050101

REACTIONS (1)
  - VOMITING [None]
